FAERS Safety Report 10618227 (Version 3)
Quarter: 2015Q4

REPORT INFORMATION
  Report Type: Spontaneous
  Country: US (occurrence: US)
  Receive Date: 20141202
  Receipt Date: 20151130
  Transmission Date: 20160304
  Serious: Yes (Other)
  Sender: FDA-Public Use
  Company Number: US-JNJCP-30000253939

PATIENT
  Age: 40 Year
  Sex: Female

DRUGS (3)
  1. JOHNSONS BABY POWDER [Suspect]
     Active Substance: TALC
     Route: 061
     Dates: start: 199701, end: 201009
  2. SHOWER TO SHOWER TALCUM PRODUCT [Suspect]
     Active Substance: TALC
     Route: 061
     Dates: start: 199701, end: 201009
  3. PRENATAL VITAMINS [Concomitant]
     Active Substance: VITAMINS
     Indication: PRODUCT USED FOR UNKNOWN INDICATION

REACTIONS (2)
  - Ovarian cancer stage I [Unknown]
  - Ovarian cancer [Unknown]

NARRATIVE: CASE EVENT DATE: 201009
